FAERS Safety Report 25686041 (Version 1)
Quarter: 2025Q3

REPORT INFORMATION
  Report Type: Other
  Country: IN (occurrence: IN)
  Receive Date: 20250815
  Receipt Date: 20250815
  Transmission Date: 20251021
  Serious: Yes (Other)
  Sender: PRASCO
  Company Number: IN-Prasco Laboratories-PRAS20250308

PATIENT

DRUGS (1)
  1. DEXAMETHASONE [Suspect]
     Active Substance: DEXAMETHASONE
     Indication: Cancer fatigue
     Route: 048

REACTIONS (1)
  - Febrile neutropenia [Unknown]
